FAERS Safety Report 5877354-2 (Version None)
Quarter: 2008Q3

REPORT INFORMATION
  Report Type: 
  Country: None (occurrence: None)
  Receive Date: 20080908
  Receipt Date: 20080826
  Transmission Date: 20090109
  Serious: Yes (Hospitalization)
  Sender: FDA-Public Use
  Company Number: 94628

PATIENT
  Age: 37 Month
  Sex: Female

DRUGS (4)
  1. ACETAMINOPHEN SUPPOSITORIES/ 120 MG [Suspect]
     Indication: PYREXIA
     Dosage: RECTAL
     Route: 054
  2. VALPROIC ACID [Concomitant]
  3. TOPIRAMATE [Concomitant]
  4. CLOBAZAM [Concomitant]

REACTIONS (4)
  - ALANINE AMINOTRANSFERASE INCREASED [None]
  - AMMONIA INCREASED [None]
  - ASPARTATE AMINOTRANSFERASE INCREASED [None]
  - LIVER INJURY [None]
